FAERS Safety Report 6653325-3 (Version None)
Quarter: 2010Q1

REPORT INFORMATION
  Report Type: 
  Country: None (occurrence: None)
  Receive Date: 20100326
  Receipt Date: 19930630
  Transmission Date: 20100710
  Serious: Yes (Death)
  Sender: FDA-Public Use
  Company Number: PHBS1993DE03836

PATIENT
  Sex: Female
  Weight: 72 kg

DRUGS (4)
  1. VOLTAREN [Suspect]
     Route: 048
     Dates: start: 19921224, end: 19921224
  2. VOLTAREN [Suspect]
     Indication: ARTHRALGIA
     Route: 061
     Dates: start: 19921228, end: 19921228
  3. TRIAMCINOLONE [Concomitant]
     Route: 014
     Dates: start: 19921227, end: 19921227
  4. BUPIVACAIN [Concomitant]
     Route: 014
     Dates: start: 19921227, end: 19921227

REACTIONS (1)
  - TOXIC EPIDERMAL NECROLYSIS [None]
